FAERS Safety Report 13668439 (Version 1)
Quarter: 2017Q2

REPORT INFORMATION
  Report Type: Spontaneous
  Country: ES (occurrence: ES)
  Receive Date: 20170620
  Receipt Date: 20170620
  Transmission Date: 20170830
  Serious: Yes (Hospitalization)
  Sender: FDA-Public Use
  Company Number: PHHY2017ES089339

PATIENT
  Age: 88 Year
  Sex: Male

DRUGS (3)
  1. SINTROM [Suspect]
     Active Substance: ACENOCOUMAROL
     Dosage: UNK
     Route: 048
  2. SIMVASTATINA [Suspect]
     Active Substance: SIMVASTATIN
     Indication: HYPERLIPIDAEMIA
     Dosage: 20 MG, QD
     Route: 048
     Dates: start: 2015, end: 20161118
  3. SINTROM [Suspect]
     Active Substance: ACENOCOUMAROL
     Indication: PROPHYLAXIS
     Dosage: 1 MG, UNK
     Route: 048
     Dates: start: 201201, end: 20161118

REACTIONS (1)
  - Haematuria [Recovered/Resolved]

NARRATIVE: CASE EVENT DATE: 20161115
